FAERS Safety Report 5311005-0 (Version None)
Quarter: 2007Q3

REPORT INFORMATION
  Report Type: 
  Country: None (occurrence: None)
  Receive Date: 20070423
  Receipt Date: 20070417
  Transmission Date: 20080115
  Serious: Yes (Life-Threatening)
  Sender: FDA-Public Use
  Company Number: 2006-143898-NL

PATIENT
  Age: 76 Year
  Sex: Female

DRUGS (8)
  1. ROCURONIUM BROMIDE [Suspect]
     Indication: ANAESTHESIA
  2. CEFALOSPORINES [Suspect]
  3. LATEX [Suspect]
  4. SUFENTANIL CITRATE [Suspect]
  5. DIAZEPAM [Suspect]
  6. CHLORHEXIDINE GLUCONATE [Suspect]
  7. ADHESIVE MASS DRESSING [Suspect]
  8. CEFAZOLIN SODIUM [Suspect]
     Dosage: DF

REACTIONS (4)
  - ALLERGY TEST POSITIVE [None]
  - ANAPHYLACTIC SHOCK [None]
  - CARDIAC ARREST [None]
  - DRUG HYPERSENSITIVITY [None]
